FAERS Safety Report 10417708 (Version 1)
Quarter: 2014Q3

REPORT INFORMATION
  Report Type: Spontaneous
  Country: US (occurrence: ZA)
  Receive Date: 20140829
  Receipt Date: 20140829
  Transmission Date: 20150326
  Serious: Yes (Congenital Anomaly)
  Sender: FDA-Public Use
  Company Number: US-CIPLA LTD.-2014ZA01172

PATIENT

DRUGS (12)
  1. ABACAVIR [Suspect]
     Active Substance: ABACAVIR
  2. EMTRICITABINE [Suspect]
     Active Substance: EMTRICITABINE
  3. EFAVIRENZ [Suspect]
     Active Substance: EFAVIRENZ
  4. SAQUINAVIR [Suspect]
     Active Substance: SAQUINAVIR
  5. ZIDOVUDINE. [Suspect]
     Active Substance: ZIDOVUDINE
  6. LAMIVUDINE. [Suspect]
     Active Substance: LAMIVUDINE
  7. STAVUDINE. [Suspect]
     Active Substance: STAVUDINE
  8. TENOFOVIR DISOFOXIL FUMARATE [Suspect]
     Active Substance: TENOFOVIR DISOPROXIL FUMARATE
  9. DIDANOSINE. [Suspect]
     Active Substance: DIDANOSINE
  10. NEVIRAPINE. [Suspect]
     Active Substance: NEVIRAPINE
  11. LOPINAVIR AND  RITONAVIR [Suspect]
     Active Substance: LOPINAVIR\RITONAVIR
  12. INDINAVIR [Suspect]
     Active Substance: INDINAVIR

REACTIONS (3)
  - Macrocephaly [Unknown]
  - Atrophy [Unknown]
  - Ventricular septal defect [Unknown]
